FAERS Safety Report 7482536-2 (Version None)
Quarter: 2011Q2

REPORT INFORMATION
  Report Type: 
  Country: None (occurrence: None)
  Receive Date: 20110516
  Receipt Date: 20110328
  Transmission Date: 20111010
  Serious: Yes (Hospitalization)
  Sender: FDA-Public Use
  Company Number: US-BAYER-201035921NA

PATIENT
  Age: 50 Year
  Sex: Female
  Weight: 65.76 kg

DRUGS (10)
  1. YASMIN [Suspect]
     Indication: CONTRACEPTION
     Dosage: UNK
     Route: 048
     Dates: start: 20030416, end: 20051001
  2. WELLBUTRIN XL [Concomitant]
     Indication: DEPRESSION
     Dosage: 150 MG, QD
     Dates: start: 20050713, end: 20051006
  3. PREVACID [Concomitant]
     Indication: GASTROOESOPHAGEAL REFLUX DISEASE
     Dosage: UNK
     Dates: start: 20030401, end: 20030501
  4. ASCORBIC ACID [Concomitant]
     Indication: NASOPHARYNGITIS
  5. CLORAZEPATE DIPOTASSIUM [Concomitant]
     Indication: ANXIETY
     Dosage: UNK
     Dates: start: 20030501
  6. YASMIN [Suspect]
     Route: 048
     Dates: start: 20041207, end: 20051013
  7. METHYLPREDNISOLONE ACETATE [Concomitant]
     Indication: BACK PAIN
     Dosage: 4 MG, UNK
  8. IBUPROFEN [Concomitant]
     Indication: BACK PAIN
     Dosage: UNK
     Dates: start: 20050329, end: 20051013
  9. TORADOL [Concomitant]
     Dosage: UNK
     Dates: end: 20050821
  10. ADVAIR DISKUS 100/50 [Concomitant]

REACTIONS (3)
  - PULMONARY EMBOLISM [None]
  - PAIN IN EXTREMITY [None]
  - CHEST PAIN [None]
